FAERS Safety Report 10338349 (Version 1)
Quarter: 2014Q3

REPORT INFORMATION
  Report Type: Spontaneous
  Country: US (occurrence: None)
  Receive Date: 20140723
  Receipt Date: 20140723
  Transmission Date: 20150326
  Serious: Yes (Other)
  Sender: FDA-Public Use
  Company Number: None

PATIENT
  Sex: Female
  Weight: 61.24 kg

DRUGS (1)
  1. VENLAFAXINE XR (GENERIC EFFEXOR XR) [Suspect]
     Active Substance: VENLAFAXINE HYDROCHLORIDE
     Indication: MAJOR DEPRESSION
     Route: 048

REACTIONS (5)
  - Drug ineffective [None]
  - Therapeutic response changed [None]
  - Nausea [None]
  - Vomiting [None]
  - Product substitution issue [None]
